FAERS Safety Report 4561367-7 (Version None)
Quarter: 2005Q1

REPORT INFORMATION
  Report Type: 
  Country: None (occurrence: None)
  Receive Date: 20050126
  Receipt Date: 20040929
  Transmission Date: 20050727
  Serious: Yes (Death, Hospitalization)
  Sender: FDA-Public Use
  Company Number: IL-ROCHE-381731

PATIENT
  Age: 74 Year
  Sex: Male
  Weight: 49 kg

DRUGS (6)
  1. CAPECITABINE [Suspect]
     Dosage: ON DAYS 1-14 OF A 21 DAY CYCLE.
     Route: 048
     Dates: start: 20040927, end: 20040928
  2. CAPECITABINE [Suspect]
     Dosage: ON DAYS 1-14 OF A 21 DAY CYCLE.
     Route: 048
     Dates: start: 20040929
  3. CAPECITABINE [Suspect]
     Dosage: ON DAYS 1-14 OF A 21 DAY CYCLE.
     Route: 048
     Dates: end: 20040615
  4. BLINDED BEVACIZUMAB [Suspect]
     Route: 042
     Dates: start: 20040927, end: 20041229
  5. OXALIPLATIN [Suspect]
     Route: 042
     Dates: start: 20040927, end: 20041229
  6. FAMOTIDIN [Concomitant]
     Dosage: BASE LINE START DATE.

REACTIONS (3)
  - PNEUMONIA [None]
  - PNEUMOTHORAX [None]
  - PYREXIA [None]
